FAERS Safety Report 4396028-0 (Version None)
Quarter: 2004Q2

REPORT INFORMATION
  Report Type: 
  Country: None (occurrence: None)
  Receive Date: 20040621
  Receipt Date: 20031117
  Transmission Date: 20050107
  Serious: Yes (Death)
  Sender: FDA-Public Use
  Company Number: USA-2003-0010834

PATIENT
  Age: 42 Year
  Sex: Male
  Weight: 127 kg

DRUGS (7)
  1. OXYCODONE HCL [Suspect]
  2. HYDROCODONE BITARTRATE [Suspect]
  3. GEMFIBROZIL [Suspect]
  4. SERTRALINE HYDROCHLORIDE [Suspect]
  5. ALPRAZOLAM [Suspect]
  6. CHLORDIAZEPOXIDE [Suspect]
  7. OLANZAPINE [Suspect]

REACTIONS (2)
  - DRUG ABUSER [None]
  - OVERDOSE [None]
